FAERS Safety Report 5514211-5 (Version None)
Quarter: 2007Q4

REPORT INFORMATION
  Report Type: 
  Country: None (occurrence: None)
  Receive Date: 20071031
  Receipt Date: 20060908
  Transmission Date: 20080405
  Serious: Yes (Other)
  Sender: FDA-Public Use
  Company Number: US018237

PATIENT
  Age: 29 Year
  Sex: Male

DRUGS (4)
  1. PROVIGIL [Suspect]
     Indication: NARCOLEPSY
     Dosage: 200 MG QD ORAL
     Route: 048
     Dates: start: 20060126, end: 20060601
  2. PROVIGIL [Suspect]
     Indication: NARCOLEPSY
     Dosage: 300 MG QD ORAL
     Route: 048
     Dates: start: 20060601, end: 20060801
  3. PROVIGIL [Suspect]
     Indication: NARCOLEPSY
     Dates: start: 20060801, end: 20060827
  4. ZANTAC [Concomitant]

REACTIONS (3)
  - DRUG INEFFECTIVE [None]
  - RECURRING SKIN BOILS [None]
  - STEVENS-JOHNSON SYNDROME [None]
